FAERS Safety Report 9953333 (Version 1)
Quarter: 2014Q1

REPORT INFORMATION
  Report Type: Spontaneous
  Country: US (occurrence: US)
  Receive Date: 20140304
  Receipt Date: 20140304
  Transmission Date: 20141002
  Serious: No
  Sender: FDA-Public Use
  Company Number: US-AMGEN-USASP2013074950

PATIENT
  Age: 41 Year
  Sex: Male
  Weight: 74 kg

DRUGS (7)
  1. ENBREL [Suspect]
     Indication: PRODUCT USED FOR UNKNOWN INDICATION
     Dosage: 50 MG, QWK
     Route: 058
  2. GEMFIBROZIL [Concomitant]
     Dosage: 600 MG, UNK
     Route: 048
  3. SIMVASTATIN [Concomitant]
     Dosage: 5 MG, UNK
     Route: 048
  4. METHOTREXATE [Concomitant]
     Dosage: 20 MG, UNK
     Route: 058
  5. PRILOSEC                           /00661201/ [Concomitant]
     Dosage: 20 MG, UNK
     Route: 048
  6. MULTIVITAMINS, PLAIN [Concomitant]
     Dosage: UNK
     Route: 048
  7. VITAMIN B12                        /00056201/ [Concomitant]
     Dosage: 1000 CR UNK, UNK
     Route: 048

REACTIONS (2)
  - Psoriatic arthropathy [Unknown]
  - Incorrect product storage [Unknown]
